FAERS Safety Report 8407796-2 (Version None)
Quarter: 2012Q2

REPORT INFORMATION
  Report Type: 
  Country: None (occurrence: None)
  Receive Date: 20120604
  Receipt Date: 20120530
  Transmission Date: 20120825
  Serious: Yes (Hospitalization)
  Sender: FDA-Public Use
  Company Number: GB-GLAXOSMITHKLINE-B0804935A

PATIENT
  Sex: Female

DRUGS (2)
  1. ACETAMINOPHEN [Concomitant]
  2. LAMICTAL [Suspect]
     Indication: PRODUCT USED FOR UNKNOWN INDICATION
     Dosage: 100MG THREE TIMES PER DAY
     Route: 048

REACTIONS (6)
  - LIP SWELLING [None]
  - SWELLING [None]
  - EATING DISORDER [None]
  - DRUG DISPENSING ERROR [None]
  - APHASIA [None]
  - BREAST FEEDING [None]
